FAERS Safety Report 13607110 (Version 1)
Quarter: 2017Q2

REPORT INFORMATION
  Report Type: Spontaneous
  Country: PT (occurrence: PT)
  Receive Date: 20170602
  Receipt Date: 20170602
  Transmission Date: 20170830
  Serious: Yes (Other)
  Sender: FDA-Public Use
  Company Number: PT-ACCORD-052123

PATIENT
  Age: 85 Year
  Sex: Female

DRUGS (9)
  1. METOCLOPRAMIDE. [Concomitant]
     Active Substance: METOCLOPRAMIDE
     Route: 048
  2. DOCETAXEL ACCORD [Suspect]
     Active Substance: DOCETAXEL
     Indication: BREAST CANCER
     Dosage: STRENGTH - 80 MG/4 ML, CYCLES OF 21/21 DAYS, IV INFUSION OF 1 HOUR WITH DILUTION IN 250 ML OF NACL
     Route: 042
     Dates: start: 20170206
  3. CLEMASTINE [Concomitant]
     Active Substance: CLEMASTINE
     Route: 042
  4. RANITIDINE. [Concomitant]
     Active Substance: RANITIDINE
     Route: 042
  5. PREDNISOLONE. [Concomitant]
     Active Substance: PREDNISOLONE
     Route: 048
  6. DOMPERIDONE [Concomitant]
     Active Substance: DOMPERIDONE
     Route: 048
  7. ONDANSETRON [Concomitant]
     Active Substance: ONDANSETRON
     Route: 042
  8. METAMIZOL MAGNESICO [Concomitant]
     Active Substance: METAMIZOLE MAGNESIUM
     Route: 048
  9. LANSOPRAZOLE. [Concomitant]
     Active Substance: LANSOPRAZOLE
     Route: 048

REACTIONS (6)
  - Rash [Recovered/Resolved]
  - Feeling hot [Recovered/Resolved]
  - Nausea [Recovered/Resolved]
  - Skin exfoliation [Recovered/Resolved]
  - Pain in extremity [Recovered/Resolved]
  - Mucosal inflammation [Recovered/Resolved]

NARRATIVE: CASE EVENT DATE: 20170217
